FAERS Safety Report 8428528-8 (Version None)
Quarter: 2012Q2

REPORT INFORMATION
  Report Type: 
  Country: None (occurrence: None)
  Receive Date: 20120612
  Receipt Date: 20120531
  Transmission Date: 20120825
  Serious: Yes (Other)
  Sender: FDA-Public Use
  Company Number: US-BRISTOL-MYERS SQUIBB COMPANY-16654790

PATIENT
  Age: 62 Year
  Sex: Male

DRUGS (20)
  1. TOPROL-XL [Concomitant]
     Dosage: 1TAB/DAY
  2. TORSEMIDE [Concomitant]
     Dosage: 1TAB/DAY
     Route: 048
  3. PRAVACHOL [Suspect]
     Route: 048
  4. FUROSEMIDE [Concomitant]
     Dosage: 1TAB/DAY
     Route: 048
  5. ACETYLSALICYLIC ACID SRT [Concomitant]
     Dosage: 1DF:81 CAPS.
     Route: 048
  6. IMDUR [Concomitant]
     Dosage: 1DAY/MORNING.
     Route: 048
  7. AMITRIPTYLINE HCL [Concomitant]
     Dosage: 1-2 TABS
     Route: 048
  8. LOSARTAN [Concomitant]
     Dosage: 1TAB/DAY
     Route: 048
  9. AMLODIPINE [Concomitant]
     Dosage: 1TAB/DAY
  10. EFFEXOR XR [Concomitant]
     Dosage: 1 CAP INCREASED TO WEEKLY TO 3-4 PER DAY 150MG
     Route: 048
  11. NASONEX [Concomitant]
     Dosage: 1DF:50MCG/INH 2 SPRAYS.
     Route: 045
  12. NITROGLYCERIN [Concomitant]
     Route: 060
  13. METFORMIN HCL [Concomitant]
     Dosage: 1TAB/DAY
     Route: 048
  14. TRICOR [Concomitant]
     Dosage: 1TAB/DAY
     Route: 048
  15. PLAVIX [Concomitant]
     Dosage: 1TAB/DAY
     Route: 048
  16. XANAX [Concomitant]
     Dosage: 1TAB/DAY
     Route: 048
  17. PROTONIX [Concomitant]
     Dosage: 1 TAB
  18. FLONASE [Concomitant]
     Dosage: 1 SPRAY
     Route: 045
  19. ZOFRAN [Concomitant]
     Indication: NAUSEA
     Dosage: 1 TAB
     Route: 048
  20. LEVOTHYROXINE SODIUM [Concomitant]
     Dosage: 1TAB/DAY
     Route: 048

REACTIONS (1)
  - THROAT TIGHTNESS [None]
